FAERS Safety Report 4344930-8 (Version None)
Quarter: 2004Q2

REPORT INFORMATION
  Report Type: 
  Country: None (occurrence: None)
  Receive Date: 20040420
  Receipt Date: 20040407
  Transmission Date: 20050107
  Serious: Yes (Hospitalization)
  Sender: FDA-Public Use
  Company Number: 04P-056-0256843-00

PATIENT
  Age: 5 Year
  Sex: Female
  Weight: 20 kg

DRUGS (9)
  1. ZECLAR (BIAXIN GRANULES) (CLARITHROMYCIN) [Suspect]
     Indication: TONSILLITIS
     Dosage: ONE DOSAGE FORM PER KG, TWICE A DAY, PER ORAL
     Route: 048
     Dates: start: 20040301
  2. BECLOMETHASONE DIPROPIONATE [Suspect]
     Indication: ASTHMA
     Dosage: 1 PUFF, 1 IN 1 D, INHALATION
     Route: 055
     Dates: start: 20010901
  3. MOMETASONE FUROATE [Suspect]
     Indication: ASTHMA
     Dosage: 1 PUFF, 2 IN 1 D, INHALATION
     Route: 055
     Dates: start: 20010901
  4. DESLORATADINE [Concomitant]
  5. SALMETEROL [Concomitant]
  6. TRIMEBUTINE [Concomitant]
  7. IBUPROFEN [Concomitant]
  8. ACETAMINOPHEN [Concomitant]
  9. BICLOTYMOL [Concomitant]

REACTIONS (11)
  - BENIGN INTRACRANIAL HYPERTENSION [None]
  - DRUG INTERACTION [None]
  - DRUG LEVEL INCREASED [None]
  - HEADACHE [None]
  - OPHTHALMOPLEGIA [None]
  - PAPILLOEDEMA [None]
  - PYREXIA [None]
  - RETINAL HAEMORRHAGE [None]
  - VISION BLURRED [None]
  - VITH NERVE PARALYSIS [None]
  - VOMITING [None]
